FAERS Safety Report 15846249 (Version 1)
Quarter: 2019Q1

REPORT INFORMATION
  Report Type: Spontaneous
  Country: IR (occurrence: IR)
  Receive Date: 20190120
  Receipt Date: 20190120
  Transmission Date: 20190417
  Serious: Yes (Death)
  Sender: FDA-Public Use
  Company Number: PHHY2019IR009722

PATIENT
  Age: 91 Day
  Sex: Male

DRUGS (5)
  1. MILRINONE [Suspect]
     Active Substance: MILRINONE
     Indication: CARDIAC FAILURE CONGESTIVE
     Dosage: HIGH DOSE
     Route: 042
  2. DOPAMINE [Suspect]
     Active Substance: DOPAMINE\DOPAMINE HYDROCHLORIDE
     Indication: CARDIAC FAILURE CONGESTIVE
     Dosage: HIGH DOSE
     Route: 042
  3. DOBUTAMINE [Suspect]
     Active Substance: DOBUTAMINE\DOBUTAMINE HYDROCHLORIDE
     Indication: CARDIAC FAILURE CONGESTIVE
     Dosage: HIGH DOSE
     Route: 042
  4. CAPTOPRIL. [Suspect]
     Active Substance: CAPTOPRIL
     Indication: CARDIAC FAILURE CONGESTIVE
     Dosage: UNK
     Route: 065
  5. FUROSEMIDE. [Suspect]
     Active Substance: FUROSEMIDE
     Indication: CARDIAC FAILURE CONGESTIVE
     Dosage: UNK
     Route: 065

REACTIONS (2)
  - Marfan^s syndrome [Fatal]
  - Cardiac failure congestive [Fatal]
